FAERS Safety Report 10007949 (Version 2)
Quarter: 2014Q1

REPORT INFORMATION
  Report Type: Spontaneous
  Country: US (occurrence: US)
  Receive Date: 20140313
  Receipt Date: 20140313
  Transmission Date: 20141002
  Serious: No
  Sender: FDA-Public Use
  Company Number: US-GILEAD-2013-0069654

PATIENT
  Sex: Female

DRUGS (6)
  1. LETAIRIS [Suspect]
     Indication: PULMONARY HYPERTENSION
     Dosage: 10 MG, QD
     Dates: start: 20120820
  2. LETAIRIS [Suspect]
     Indication: BRONCHOPULMONARY DYSPLASIA
  3. LETAIRIS [Suspect]
     Indication: HYPOXIA
  4. LETAIRIS [Suspect]
     Indication: CHRONIC OBSTRUCTIVE PULMONARY DISEASE
  5. LETAIRIS [Suspect]
     Indication: INTERSTITIAL LUNG DISEASE
  6. TYVASO [Concomitant]

REACTIONS (3)
  - Cough [Unknown]
  - Headache [Unknown]
  - Dizziness [Not Recovered/Not Resolved]
